FAERS Safety Report 14195591 (Version 1)
Quarter: 2017Q4

REPORT INFORMATION
  Report Type: Spontaneous
  Country: US (occurrence: US)
  Receive Date: 20171116
  Receipt Date: 20171116
  Transmission Date: 20180321
  Serious: No
  Sender: FDA-Public Use
  Company Number: US-COLLEGIUM PHARMACEUTICAL, INC.-2017CGM00083

PATIENT
  Age: 71 Year
  Sex: Male
  Weight: 90.7 kg

DRUGS (6)
  1. XTAMPZA ER [Suspect]
     Active Substance: OXYCODONE
     Dosage: 36 MG, UNK
     Dates: start: 201709, end: 201709
  2. OXYCODONE [Concomitant]
     Active Substance: OXYCODONE
     Dosage: 5 MG, AS NEEDED (USUALLY ONCE A DAY)
  3. CLONIDINE. [Concomitant]
     Active Substance: CLONIDINE
     Dosage: 0.1 MG, 2X/DAY
  4. LIDOCAINE. [Concomitant]
     Active Substance: LIDOCAINE
     Dosage: UNK, AS NEEDED ON THE TIP OF HIS SPINE
  5. COMBIVENT [Concomitant]
     Active Substance: ALBUTEROL SULFATE\IPRATROPIUM BROMIDE
  6. XTAMPZA ER [Suspect]
     Active Substance: OXYCODONE
     Indication: PAIN
     Dosage: 72 MG, 2X/DAY
     Route: 048
     Dates: start: 2017

REACTIONS (10)
  - Malaise [Not Recovered/Not Resolved]
  - Hyperaesthesia [Not Recovered/Not Resolved]
  - Drug ineffective [Not Recovered/Not Resolved]
  - Pharyngeal oedema [Recovered/Resolved]
  - Drug withdrawal syndrome [Not Recovered/Not Resolved]
  - Accidental underdose [Recovered/Resolved]
  - Mental impairment [Not Recovered/Not Resolved]
  - Myalgia [Unknown]
  - Agitation [Not Recovered/Not Resolved]
  - Pain [Not Recovered/Not Resolved]

NARRATIVE: CASE EVENT DATE: 2017
